FAERS Safety Report 5840467-5 (Version None)
Quarter: 2008Q3

REPORT INFORMATION
  Report Type: 
  Country: None (occurrence: None)
  Receive Date: 20080807
  Receipt Date: 20080807
  Transmission Date: 20090109
  Serious: No
  Sender: FDA-Public Use
  Company Number: None

PATIENT

DRUGS (2)
  1. LEVAQUIN [Suspect]
     Indication: ABSCESS
     Dosage: 750 MG TWICE DAILY PO
     Route: 048
     Dates: start: 20080514, end: 20080520
  2. LEVAQUIN [Suspect]
     Indication: CELLULITIS
     Dosage: 750 MG TWICE DAILY PO
     Route: 048
     Dates: start: 20080514, end: 20080520

REACTIONS (4)
  - GAIT DISTURBANCE [None]
  - MYALGIA [None]
  - PAIN IN EXTREMITY [None]
  - TENDON PAIN [None]
